FAERS Safety Report 6800601-7 (Version None)
Quarter: 2010Q2

REPORT INFORMATION
  Report Type: 
  Country: None (occurrence: None)
  Receive Date: 20100629
  Receipt Date: 20100621
  Transmission Date: 20101027
  Serious: Yes (Death, Hospitalization)
  Sender: FDA-Public Use
  Company Number: US-CELGENEUS-163-C5013-10052577

PATIENT
  Sex: Male
  Weight: 83.536 kg

DRUGS (31)
  1. THALIDOMIDE [Suspect]
     Indication: MULTIPLE MYELOMA
     Route: 048
     Dates: start: 20100311, end: 20100405
  2. MELPHALAN HYDROCHLORIDE [Suspect]
     Indication: MULTIPLE MYELOMA
     Route: 065
     Dates: start: 20100520, end: 20100524
  3. MELPHALAN HYDROCHLORIDE [Suspect]
     Route: 065
     Dates: start: 20100311, end: 20100524
  4. PREDNISONE [Suspect]
     Indication: MULTIPLE MYELOMA
     Route: 065
     Dates: start: 20100520, end: 20100524
  5. PREDNISONE [Suspect]
     Route: 065
     Dates: start: 20100311
  6. ATENOLOL [Concomitant]
     Indication: HYPERTENSION
     Route: 048
     Dates: start: 20090201
  7. ATENOLOL [Concomitant]
     Route: 048
     Dates: start: 20100526
  8. CLOBEX [Concomitant]
     Indication: PSORIASIS
     Route: 061
     Dates: start: 20100201
  9. ECOTRIN [Concomitant]
     Indication: THROMBOSIS PROPHYLAXIS
     Route: 048
  10. OXYGEN [Concomitant]
     Indication: DRUG USE FOR UNKNOWN INDICATION
     Route: 055
     Dates: start: 20100526
  11. DEXTROSE 5%-WATER [Concomitant]
     Indication: DEHYDRATION
     Route: 051
     Dates: start: 20100526, end: 20100602
  12. DEXTROSE 5%-WATER [Concomitant]
     Indication: MEDICATION DILUTION
  13. PROMETHAZINE HCL [Concomitant]
     Route: 065
     Dates: start: 20100526, end: 20100602
  14. PROMETHAZINE HCL [Concomitant]
  15. ACETAMINOPHEN [Concomitant]
     Indication: DRUG USE FOR UNKNOWN INDICATION
     Dosage: 325-650MG
     Route: 048
     Dates: start: 20100526, end: 20100526
  16. DIPHENHYDRAMINE HCL [Concomitant]
     Indication: ANAPHYLAXIS PROPHYLAXIS
     Route: 048
     Dates: start: 20100526, end: 20100602
  17. LACTULOSE [Concomitant]
     Indication: DRUG USE FOR UNKNOWN INDICATION
     Route: 048
     Dates: start: 20100526
  18. BISACODYL [Concomitant]
     Indication: DRUG USE FOR UNKNOWN INDICATION
     Route: 065
     Dates: start: 20100526
  19. ALUMINUM HYDROXIDE/MAGNESIUM HYDROXIDE [Concomitant]
     Indication: DRUG USE FOR UNKNOWN INDICATION
     Route: 048
     Dates: start: 20100526
  20. ZOFRAN [Concomitant]
     Indication: DRUG USE FOR UNKNOWN INDICATION
     Route: 048
     Dates: start: 20100526
  21. METOCLOPRAMIDE HCL [Concomitant]
     Indication: DRUG USE FOR UNKNOWN INDICATION
     Route: 048
     Dates: start: 20100526
  22. SODIUM CHLORIDE [Concomitant]
     Indication: DEHYDRATION
     Dosage: 0.65; 1 SPRAY
     Route: 065
     Dates: start: 20100526, end: 20100602
  23. SODIUM CHLORIDE [Concomitant]
     Route: 051
     Dates: start: 20100526, end: 20100526
  24. ALBUTEROL SULFATE [Concomitant]
     Indication: DRUG USE FOR UNKNOWN INDICATION
     Route: 055
     Dates: start: 20100526
  25. ALBUTEROL SULFATE [Concomitant]
     Route: 055
     Dates: start: 20100526
  26. CLOPIDOGREL BISULFATE [Concomitant]
     Indication: DRUG USE FOR UNKNOWN INDICATION
     Route: 048
     Dates: start: 20100526
  27. ESOMEPRAZOLE [Concomitant]
     Indication: DRUG USE FOR UNKNOWN INDICATION
     Route: 065
     Dates: start: 20100526
  28. MULTI-VITAMINS [Concomitant]
     Indication: DRUG USE FOR UNKNOWN INDICATION
     Route: 048
     Dates: start: 20100526
  29. LASIX [Concomitant]
     Indication: DRUG USE FOR UNKNOWN INDICATION
     Route: 048
     Dates: start: 20100526
  30. EPOETIN ALFA [Concomitant]
     Dosage: 2000-1000
     Dates: start: 20100527, end: 20100529
  31. POTASSIUM CHLORIDE [Concomitant]
     Dosage: 20-40
     Dates: start: 20100527, end: 20100602

REACTIONS (2)
  - ACUTE RESPIRATORY FAILURE [None]
  - PNEUMONIA ASPIRATION [None]
